FAERS Safety Report 13351219 (Version 3)
Quarter: 2018Q4

REPORT INFORMATION
  Report Type: Report from Study
  Country: JP (occurrence: JP)
  Receive Date: 20170320
  Receipt Date: 20181224
  Transmission Date: 20190204
  Serious: Yes (Life-Threatening, Hospitalization, Other)
  Sender: FDA-Public Use
  Company Number: JP-BAUSCH-BL-2017-007139

PATIENT
  Age: 75 Year
  Sex: Male
  Weight: 78 kg

DRUGS (4)
  1. TARGRETIN [Suspect]
     Active Substance: BEXAROTENE
     Indication: MYCOSIS FUNGOIDES
     Dosage: 300 MG/M2/DAY
     Route: 048
     Dates: start: 20160729, end: 20170512
  2. THYRADIN [Concomitant]
     Active Substance: LEVOTHYROXINE
     Indication: PRODUCT USED FOR UNKNOWN INDICATION
  3. TARGRETIN [Suspect]
     Active Substance: BEXAROTENE
     Route: 048
     Dates: start: 2018
  4. TARGRETIN [Suspect]
     Active Substance: BEXAROTENE
     Route: 048
     Dates: start: 20170513, end: 2018

REACTIONS (9)
  - Upper gastrointestinal haemorrhage [Recovered/Resolved]
  - Pleural effusion [Recovering/Resolving]
  - Pneumonia aspiration [Recovered/Resolved]
  - Decreased appetite [Recovered/Resolved]
  - Cataract [Not Recovered/Not Resolved]
  - Ascites [Recovering/Resolving]
  - Dyslipidaemia [Recovered/Resolved]
  - Hypothyroidism [Not Recovered/Not Resolved]
  - Weight decreased [Unknown]

NARRATIVE: CASE EVENT DATE: 20160805
